FAERS Safety Report 8102526-6 (Version None)
Quarter: 2012Q1

REPORT INFORMATION
  Report Type: 
  Country: None (occurrence: None)
  Receive Date: 20120201
  Receipt Date: 20120123
  Transmission Date: 20120608
  Serious: Yes (Hospitalization)
  Sender: FDA-Public Use
  Company Number: US-BAYER-2011-104517

PATIENT
  Age: 24 Year
  Sex: Female
  Weight: 75 kg

DRUGS (3)
  1. ETHINYLESTRADIOL W/NORGESTIMATE [Concomitant]
     Dosage: UNK
     Dates: start: 20090924
  2. YAZ [Suspect]
     Indication: ORAL CONTRACEPTION
     Dosage: UNK
     Route: 048
     Dates: start: 20090415, end: 20090928
  3. ORTHO TRI-CYCLEN LO [Concomitant]
     Indication: ORAL CONTRACEPTION
     Dosage: UNK
     Dates: end: 20091001

REACTIONS (1)
  - PULMONARY EMBOLISM [None]
